FAERS Safety Report 17613900 (Version 1)
Quarter: 2020Q2

REPORT INFORMATION
  Report Type: Spontaneous
  Country: US (occurrence: US)
  Receive Date: 20200402
  Receipt Date: 20200402
  Transmission Date: 20200713
  Serious: No
  Sender: FDA-Public Use
  Company Number: US-BEH-2020114595

PATIENT
  Age: 37 Year
  Sex: Male

DRUGS (1)
  1. PRIVIGEN [Suspect]
     Active Substance: HUMAN IMMUNOGLOBULIN G
     Indication: POLYNEUROPATHY
     Dosage: 60 GRAM, DAILY FOR 4 DAYS
     Route: 042
     Dates: start: 20190828

REACTIONS (2)
  - Insurance issue [Unknown]
  - Malaise [Unknown]

NARRATIVE: CASE EVENT DATE: 202003
